FAERS Safety Report 4491245-3 (Version None)
Quarter: 2004Q4

REPORT INFORMATION
  Report Type: 
  Country: None (occurrence: None)
  Receive Date: 20041101
  Receipt Date: 20041101
  Transmission Date: 20050328
  Serious: Yes (Hospitalization)
  Sender: FDA-Public Use
  Company Number: None

PATIENT
  Age: 66 Year
  Sex: Male
  Weight: 121 kg

DRUGS (10)
  1. EPOETIN ALFA [Suspect]
     Indication: ANAEMIA
     Dosage: 3000 U X 1 IVP
     Route: 042
  2. EPOETIN ALFA [Suspect]
     Indication: RENAL IMPAIRMENT
     Dosage: 3000 U X 1 IVP
     Route: 042
  3. FERRIC GLUCONATE (FERRLECIT) [Suspect]
     Indication: ANAEMIA
     Dosage: 125 MG X 1 IVPB
     Route: 042
  4. FERRIC GLUCONATE (FERRLECIT) [Suspect]
     Indication: RENAL IMPAIRMENT
     Dosage: 125 MG X 1 IVPB
     Route: 042
  5. DOCUSATE [Concomitant]
  6. FELODIPINE [Concomitant]
  7. SYNTHROID [Concomitant]
  8. METOPROLOL SUCCINATE [Concomitant]
  9. TERAZOSIN HCL [Concomitant]
  10. ALBUTEROL [Concomitant]

REACTIONS (3)
  - DYSPNOEA [None]
  - TREMOR [None]
  - WHEEZING [None]
